FAERS Safety Report 19720059 (Version 1)
Quarter: 2021Q3

REPORT INFORMATION
  Report Type: Spontaneous
  Country: IL (occurrence: IL)
  Receive Date: 20210818
  Receipt Date: 20210818
  Transmission Date: 20211014
  Serious: Yes (Life-Threatening, Hospitalization)
  Sender: FDA-Public Use
  Company Number: IL-MYLANLABS-2021M1052987

PATIENT
  Age: 12 Month
  Sex: Female

DRUGS (9)
  1. EPINEPHRINE. [Suspect]
     Active Substance: EPINEPHRINE
     Indication: SEPTIC SHOCK
     Dosage: UNK
     Route: 065
  2. MEASLES VACCINE W/MUMPS VACCINE/RUB/09408601/ [Suspect]
     Active Substance: MEASLES-MUMPS-RUBELLA-VARICELLA VIRUS VACCINE, LIVE
     Indication: IMMUNISATION
     Dosage: UNK
     Route: 065
  3. AMOXICILLIN. [Concomitant]
     Active Substance: AMOXICILLIN
     Indication: ANTIBIOTIC PROPHYLAXIS
     Dosage: UNK
     Route: 065
  4. CAPTOPRIL. [Concomitant]
     Active Substance: CAPTOPRIL
     Indication: HEART DISEASE CONGENITAL
     Dosage: UNK
     Route: 065
  5. HYDROCORTISONE. [Suspect]
     Active Substance: HYDROCORTISONE
     Indication: SEPTIC SHOCK
     Dosage: 8 MILLIGRAM/KILOGRAM, QD
     Route: 065
  6. FUROSEMIDE. [Concomitant]
     Active Substance: FUROSEMIDE
     Indication: PRODUCT USED FOR UNKNOWN INDICATION
     Dosage: UNK
     Route: 065
  7. CEFTRIAXONE. [Concomitant]
     Active Substance: CEFTRIAXONE
     Indication: PNEUMOCOCCAL SEPSIS
     Dosage: UNK
     Route: 065
  8. ACETYLSALICYLIC ACID [Concomitant]
     Active Substance: ASPIRIN
     Indication: HEART DISEASE CONGENITAL
     Dosage: UNK
     Route: 065
  9. HYDROCORTISONE. [Suspect]
     Active Substance: HYDROCORTISONE
     Dosage: 1.5 MILLIGRAM/KILOGRAM, QD (MAINTENANCE DOSE OF 1.5 MG/KG/DAY)
     Route: 065

REACTIONS (2)
  - Therapy non-responder [Unknown]
  - Varicella zoster virus infection [Recovered/Resolved]
